FAERS Safety Report 18721895 (Version 2)
Quarter: 2021Q1

REPORT INFORMATION
  Report Type: Spontaneous
  Country: IN (occurrence: IN)
  Receive Date: 20210111
  Receipt Date: 20210111
  Transmission Date: 20210419
  Serious: Yes (Other)
  Sender: FDA-Public Use
  Company Number: IN-CIPLA LTD.-2021IN00067

PATIENT

DRUGS (3)
  1. ALCOHOL. [Suspect]
     Active Substance: ALCOHOL
     Dosage: UNK
     Route: 048
     Dates: start: 20190305
  2. AMLODIPINE [Suspect]
     Active Substance: AMLODIPINE BESYLATE
     Dosage: 30 TABLETS OF 5 MG
     Route: 048
     Dates: start: 20190305
  3. ATENOLOL. [Suspect]
     Active Substance: ATENOLOL
     Dosage: 30 TABLETS OF 50 MG, UNK
     Route: 048
     Dates: start: 20190305

REACTIONS (7)
  - Hypokalaemia [Unknown]
  - Toxicity to various agents [Unknown]
  - Hypotension [Unknown]
  - Sepsis [Unknown]
  - Pneumonia aspiration [Unknown]
  - Intentional overdose [Unknown]
  - Hypoglycaemia [Unknown]

NARRATIVE: CASE EVENT DATE: 20190305
